FAERS Safety Report 17335738 (Version 1)
Quarter: 2020Q1

REPORT INFORMATION
  Report Type: Spontaneous
  Country: US (occurrence: US)
  Receive Date: 20200128
  Receipt Date: 20200128
  Transmission Date: 20200409
  Serious: No
  Sender: FDA-Public Use
  Company Number: US-BAYER-2020-015042

PATIENT
  Sex: Male

DRUGS (2)
  1. MIRALAX [Suspect]
     Active Substance: POLYETHYLENE GLYCOL 3350
     Indication: STOOL ANALYSIS ABNORMAL
     Dosage: UNK UNK, QOD
     Route: 048
  2. MIRALAX [Suspect]
     Active Substance: POLYETHYLENE GLYCOL 3350
     Indication: STOOL ANALYSIS ABNORMAL
     Dosage: UNK UNK, QD
     Route: 048

REACTIONS (3)
  - Product use in unapproved indication [Unknown]
  - Constipation [Unknown]
  - Off label use [Unknown]
